FAERS Safety Report 5069719-6 (Version None)
Quarter: 2006Q3

REPORT INFORMATION
  Report Type: 
  Country: None (occurrence: None)
  Receive Date: 20060803
  Receipt Date: 20060728
  Transmission Date: 20061208
  Serious: Yes (Death)
  Sender: FDA-Public Use
  Company Number: TR-BRISTOL-MYERS SQUIBB COMPANY-13462064

PATIENT
  Age: 13 Year
  Sex: Female

DRUGS (5)
  1. CYCLOPHOSPHAMIDE [Suspect]
     Indication: BONE SARCOMA
  2. CISPLATIN [Suspect]
     Indication: BONE SARCOMA
  3. BLEOMYCIN SULFATE [Suspect]
     Indication: BONE SARCOMA
  4. DACTINOMYCIN [Suspect]
     Indication: BONE SARCOMA
  5. ADRIAMYCIN PFS [Suspect]
     Indication: BONE SARCOMA

REACTIONS (2)
  - GASTRIC CANCER [None]
  - TREATMENT RELATED SECONDARY MALIGNANCY [None]
